FAERS Safety Report 5328283-4 (Version None)
Quarter: 2007Q2

REPORT INFORMATION
  Report Type: 
  Country: None (occurrence: None)
  Receive Date: 20070515
  Receipt Date: 20070515
  Transmission Date: 20071010
  Serious: Yes (Life-Threatening, Hospitalization)
  Sender: FDA-Public Use
  Company Number: None

PATIENT
  Sex: Male
  Weight: 86.7 kg

DRUGS (7)
  1. METHADONE HCL [Suspect]
     Indication: POST HERPETIC NEURALGIA
     Dosage: 5MG BID (PO)
     Route: 048
     Dates: start: 20060316, end: 20060513
  2. VICODIN [Concomitant]
  3. GABAPENTIN [Concomitant]
  4. ACETAMINOPHEN [Concomitant]
  5. DONEPEZIL HCL [Concomitant]
  6. SIMVASTATIN [Concomitant]
  7. TAMSULOSIN HCL [Concomitant]

REACTIONS (5)
  - APNOEA [None]
  - HYPERHIDROSIS [None]
  - LOSS OF CONSCIOUSNESS [None]
  - MIOSIS [None]
  - PUPILLARY REFLEX IMPAIRED [None]
